FAERS Safety Report 16491841 (Version 1)
Quarter: 2019Q2

REPORT INFORMATION
  Report Type: Spontaneous
  Country: ES (occurrence: ES)
  Receive Date: 20190628
  Receipt Date: 20190628
  Transmission Date: 20190711
  Serious: Yes (Other)
  Sender: FDA-Public Use
  Company Number: ES-ABBVIE-19K-144-2835486-00

PATIENT
  Sex: Male

DRUGS (1)
  1. TESTOGEL [Suspect]
     Active Substance: TESTOSTERONE
     Indication: PRODUCT USED FOR UNKNOWN INDICATION
     Dosage: 30 SINGLE TOPICAL DOSE CONTAINERS IN ENVELOPES
     Route: 048
     Dates: start: 2019, end: 2019

REACTIONS (2)
  - Incorrect route of product administration [Recovered/Resolved]
  - Dysphagia [Recovered/Resolved]

NARRATIVE: CASE EVENT DATE: 2019
